FAERS Safety Report 6633037-2 (Version None)
Quarter: 2010Q1

REPORT INFORMATION
  Report Type: 
  Country: None (occurrence: None)
  Receive Date: 20100310
  Receipt Date: 20100223
  Transmission Date: 20100710
  Serious: Yes (Other)
  Sender: FDA-Public Use
  Company Number: US-1180981

PATIENT
  Age: 23 Year
  Sex: Female

DRUGS (3)
  1. NEVANAC [Suspect]
     Indication: PHOTOREFRACTIVE KERATECTOMY
     Dosage: (OPHTHALMIC)
     Route: 047
  2. OMNIPRED [Concomitant]
  3. VIGAMOX [Concomitant]

REACTIONS (4)
  - CORNEAL OPACITY [None]
  - EYE PAIN [None]
  - IMPAIRED HEALING [None]
  - PHOTOPHOBIA [None]
